FAERS Safety Report 4393935-X (Version None)
Quarter: 2004Q3

REPORT INFORMATION
  Report Type: 
  Country: None (occurrence: None)
  Receive Date: 20040702
  Receipt Date: 20040617
  Transmission Date: 20050211
  Serious: Yes (Hospitalization)
  Sender: FDA-Public Use
  Company Number: 235281

PATIENT
  Age: 25 Year
  Sex: Female
  Weight: 96 kg

DRUGS (5)
  1. ACTRAPID PENFILL HM (GE) 3 ML (ACTRAPID PENFILL HM (GE) 3 ML) (INSULIN [Suspect]
     Indication: DIABETES MELLITUS INSULIN-DEPENDENT
     Dosage: 118 IU, QD, SUBCUTANEOUS; SEE IMAGE
     Route: 058
     Dates: start: 20031003
  2. INSULATARD PENFILL (INSULIN HUMAN) [Concomitant]
  3. MULTIVITAMIN [Concomitant]
  4. IRON [Concomitant]
  5. METYLDOPA [Concomitant]

REACTIONS (8)
  - BLOOD GLUCOSE FLUCTUATION [None]
  - BLOOD PRESSURE INCREASED [None]
  - DRUG EXPOSURE DURING PREGNANCY [None]
  - FOETAL GROWTH RETARDATION [None]
  - GLYCOSYLATED HAEMOGLOBIN INCREASED [None]
  - METABOLIC DISORDER [None]
  - NEPHROTIC SYNDROME [None]
  - PRE-ECLAMPSIA [None]
